FAERS Safety Report 5445228-7 (Version None)
Quarter: 2007Q3

REPORT INFORMATION
  Report Type: 
  Country: None (occurrence: None)
  Receive Date: 20070731
  Receipt Date: 20070521
  Transmission Date: 20080115
  Serious: No
  Sender: FDA-Public Use
  Company Number: US200706004152

PATIENT
  Age: 43 Year
  Sex: Female

DRUGS (6)
  1. BYETTA [Suspect]
     Indication: TYPE 2 DIABETES MELLITUS
     Dosage: SEE IMAGE
     Dates: start: 20070401, end: 20070519
  2. BYETTA [Suspect]
     Indication: TYPE 2 DIABETES MELLITUS
     Dosage: SEE IMAGE
     Dates: start: 20070520
  3. BYETTA [Suspect]
     Indication: TYPE 2 DIABETES MELLITUS
     Dosage: SEE IMAGE
     Dates: start: 20070520
  4. ACTOS (PIOGLITAZONE HYYDROCHLORIDE) [Concomitant]
  5. GLUCOTROL [Concomitant]
  6. AMARYL [Concomitant]

REACTIONS (3)
  - FEELING JITTERY [None]
  - INCORRECT DOSE ADMINISTERED [None]
  - INJECTION SITE DISCOMFORT [None]
